FAERS Safety Report 17521198 (Version 1)
Quarter: 2020Q1

REPORT INFORMATION
  Report Type: Spontaneous
  Country: US (occurrence: US)
  Receive Date: 20200302
  Receipt Date: 20200302
  Transmission Date: 20200409
  Serious: Yes (Disabling)
  Sender: FDA-Public Use
  Company Number: None

PATIENT
  Age: 65 Year
  Sex: Female
  Weight: 61.23 kg

DRUGS (5)
  1. ARMOUR THYROID [Concomitant]
     Active Substance: THYROID, PORCINE
  2. DOXAZOSIN [Suspect]
     Active Substance: DOXAZOSIN MESYLATE
     Indication: HYPERTENSION
     Dosage: ?          QUANTITY:1 TABLET;?
     Route: 048
     Dates: start: 20190315, end: 20190410
  3. CLONIDINE. [Concomitant]
     Active Substance: CLONIDINE
  4. ANTHIHISTOME [Concomitant]
  5. THYLONALD [Concomitant]

REACTIONS (6)
  - Capillary leak syndrome [None]
  - Gait disturbance [None]
  - Muscle spasms [None]
  - Kidney infection [None]
  - Limb discomfort [None]
  - Peripheral swelling [None]

NARRATIVE: CASE EVENT DATE: 20190315
